FAERS Safety Report 10661043 (Version 2)
Quarter: 2014Q4

REPORT INFORMATION
  Report Type: Spontaneous
  Country: DE (occurrence: DE)
  Receive Date: 20141218
  Receipt Date: 20141218
  Transmission Date: 20150529
  Serious: Yes (Other)
  Sender: FDA-Public Use
  Company Number: DE-AUROBINDO-AUR-APL-2014-12779

PATIENT
  Age: 88 Year
  Sex: Male
  Weight: 54 kg

DRUGS (5)
  1. AMIODARON /00133101/ [Interacting]
     Active Substance: AMIODARONE
     Indication: ATRIAL FIBRILLATION
     Dosage: 200 MG, 3 TIMES A DAY
     Route: 048
     Dates: start: 20141108
  2. CICLOSPORIN A [Interacting]
     Active Substance: CYCLOSPORINE
     Indication: GLOMERULONEPHRITIS MEMBRANOPROLIFERATIVE
     Dosage: 75 MG, ONCE A DAY
     Route: 048
  3. AMIODARON                          /00133101/ [Interacting]
     Active Substance: AMIODARONE
     Dosage: 200 MG, ONCE A DAY
     Route: 048
     Dates: end: 20141125
  4. SIMVASTATIN 40MG [Suspect]
     Active Substance: SIMVASTATIN
     Indication: HYPERLIPIDAEMIA
     Dosage: 40 MG, 1X40 MG
     Route: 048
     Dates: end: 20141126
  5. CICLOSPORIN A [Interacting]
     Active Substance: CYCLOSPORINE
     Indication: IMMUNOSUPPRESSION
     Dosage: 50 MG, UNK
     Route: 048
     Dates: end: 20141126

REACTIONS (7)
  - Rhabdomyolysis [Not Recovered/Not Resolved]
  - Blood creatine phosphokinase increased [Not Recovered/Not Resolved]
  - Alanine aminotransferase increased [Not Recovered/Not Resolved]
  - Drug interaction [Not Recovered/Not Resolved]
  - Blood lactate dehydrogenase increased [Not Recovered/Not Resolved]
  - Aspartate aminotransferase increased [Not Recovered/Not Resolved]
  - Muscular weakness [Not Recovered/Not Resolved]

NARRATIVE: CASE EVENT DATE: 20141121
